FAERS Safety Report 19769482 (Version 2)
Quarter: 2021Q3

REPORT INFORMATION
  Report Type: Spontaneous
  Country: NO (occurrence: NO)
  Receive Date: 20210831
  Receipt Date: 20210921
  Transmission Date: 20211014
  Serious: Yes (Hospitalization, Disabling, Other)
  Sender: FDA-Public Use
  Company Number: NO-MYLANLABS-2021M1056451

PATIENT
  Sex: Female

DRUGS (13)
  1. TRIMETHOPRIM. [Concomitant]
     Active Substance: TRIMETHOPRIM
     Indication: PRODUCT USED FOR UNKNOWN INDICATION
     Dosage: UNK UNK, UNKNOWN
     Route: 065
  2. ALBYL?E [Concomitant]
     Active Substance: ASPIRIN\MAGNESIUM OXIDE
     Dosage: UNK
  3. SIMVASTATIN. [Suspect]
     Active Substance: SIMVASTATIN
     Indication: PRODUCT USED FOR UNKNOWN INDICATION
     Dosage: UNK
     Route: 048
  4. MERCILON [Suspect]
     Active Substance: DESOGESTREL\ETHINYL ESTRADIOL
     Indication: CONTRACEPTION
     Dosage: UNK UNK, UNKNOWN
     Route: 048
     Dates: start: 20070206, end: 200803
  5. DUPHALAC [Concomitant]
     Active Substance: LACTULOSE
     Indication: PRODUCT USED FOR UNKNOWN INDICATION
     Dosage: 10 MILLILITER (10 ML, UNKNOWN)
     Route: 065
     Dates: start: 20080314
  6. DUPHALAC [Concomitant]
     Active Substance: LACTULOSE
     Dosage: UNK
  7. ZOCOR [Suspect]
     Active Substance: SIMVASTATIN
     Indication: PRODUCT USED FOR UNKNOWN INDICATION
     Dosage: 40 MILLIGRAM (40 MG, UNK)
     Route: 048
     Dates: start: 200803
  8. TRINORDIOL [Concomitant]
     Active Substance: ETHINYL ESTRADIOL\LEVONORGESTREL
     Indication: PRODUCT USED FOR UNKNOWN INDICATION
     Dosage: UNK
     Route: 065
  9. PERSANTIN [Concomitant]
     Active Substance: DIPYRIDAMOLE
     Dosage: UNK
  10. PARACETAMOL [Concomitant]
     Active Substance: ACETAMINOPHEN
     Indication: PRODUCT USED FOR UNKNOWN INDICATION
     Dosage: UNK
     Route: 065
  11. TOILAX [Concomitant]
     Active Substance: BISACODYL
     Indication: PRODUCT USED FOR UNKNOWN INDICATION
     Dosage: UNK UNK, UNKNOWN
     Route: 065
  12. ALBYL?E [Concomitant]
     Active Substance: ASPIRIN\MAGNESIUM OXIDE
     Indication: PRODUCT USED FOR UNKNOWN INDICATION
     Dosage: 160 MILLIGRAM (160 MG, UNK)
     Route: 065
     Dates: start: 200803
  13. PERSANTIN [Concomitant]
     Active Substance: DIPYRIDAMOLE
     Indication: PRODUCT USED FOR UNKNOWN INDICATION
     Dosage: 200 MILLIGRAM (200 MG, UNK)
     Route: 065
     Dates: start: 200803

REACTIONS (12)
  - Generalised anxiety disorder [Unknown]
  - Pain [Recovered/Resolved with Sequelae]
  - Ovarian cyst [Recovered/Resolved]
  - Hyperventilation [Unknown]
  - Panic disorder [Unknown]
  - Agoraphobia [Unknown]
  - Myopathy [Recovered/Resolved with Sequelae]
  - Spinal artery thrombosis [Recovered/Resolved with Sequelae]
  - Anxiety [Unknown]
  - Depression [Unknown]
  - Spinal cord infarction [Recovered/Resolved with Sequelae]
  - Muscle spasms [Unknown]

NARRATIVE: CASE EVENT DATE: 2008
